FAERS Safety Report 5124720-9 (Version None)
Quarter: 2006Q4

REPORT INFORMATION
  Report Type: 
  Country: None (occurrence: None)
  Receive Date: 20061006
  Receipt Date: 20061006
  Transmission Date: 20070319
  Serious: No
  Sender: FDA-Public Use
  Company Number: None

PATIENT
  Age: 69 Year
  Sex: Male

DRUGS (1)
  1. TARCEVA [Suspect]
     Indication: PROSTATE CANCER
     Dosage: 150 MG PO QD
     Route: 048
     Dates: start: 20060726, end: 20060906

REACTIONS (6)
  - DEHYDRATION [None]
  - DIFFICULT TO WEAN FROM VENTILATOR [None]
  - GENERAL PHYSICAL HEALTH DETERIORATION [None]
  - HYPOTENSION [None]
  - RESPIRATORY DISORDER [None]
  - TREMOR [None]
